FAERS Safety Report 6822177-0 (Version None)
Quarter: 2010Q3

REPORT INFORMATION
  Report Type: 
  Country: None (occurrence: None)
  Receive Date: 20100708
  Receipt Date: 20100702
  Transmission Date: 20110219
  Serious: Yes (Hospitalization)
  Sender: FDA-Public Use
  Company Number: SE-ABBOTT-09P-150-0560129-00

PATIENT
  Sex: Female
  Weight: 83 kg

DRUGS (3)
  1. HUMIRA [Suspect]
     Indication: CROHN'S DISEASE
     Route: 058
     Dates: start: 20081022
  2. PURINETHOL [Concomitant]
     Indication: CROHN'S DISEASE
     Route: 048
     Dates: start: 20070828, end: 20090327
  3. URSO FALK [Concomitant]
     Indication: PRODUCT USED FOR UNKNOWN INDICATION

REACTIONS (4)
  - CROHN'S DISEASE [None]
  - HEPATIC FAILURE [None]
  - LEUKOPENIA [None]
  - THROMBOCYTOPENIA [None]
